FAERS Safety Report 10064660 (Version 1)
Quarter: 2014Q1

REPORT INFORMATION
  Report Type: Spontaneous
  Country: US (occurrence: None)
  Receive Date: 20140328
  Receipt Date: 20140328
  Transmission Date: 20141002
  Serious: No
  Sender: FDA-Public Use
  Company Number: 1000054177

PATIENT
  Age: 42 Year
  Sex: Female

DRUGS (2)
  1. LINZESS [Suspect]
     Indication: IRRITABLE BOWEL SYNDROME
     Route: 048
     Dates: start: 20140203, end: 20140209
  2. MIGRAINE MEDICINE (NOS) (MIGRAINE MEDICINE (NOS)) [Concomitant]

REACTIONS (2)
  - Migraine [None]
  - Diarrhoea [None]
